FAERS Safety Report 18485735 (Version 1)
Quarter: 2020Q4

REPORT INFORMATION
  Report Type: Spontaneous
  Country: CA (occurrence: CA)
  Receive Date: 20201110
  Receipt Date: 20201110
  Transmission Date: 20210114
  Serious: Yes (Hospitalization)
  Sender: FDA-Public Use
  Company Number: CA-PFIZER INC-2020429363

PATIENT
  Sex: Female

DRUGS (4)
  1. ALTACE [Suspect]
     Active Substance: RAMIPRIL
     Dosage: 2 DF, QD
     Route: 048
     Dates: start: 2019, end: 2019
  2. ALTACE [Suspect]
     Active Substance: RAMIPRIL
     Indication: HYPERTENSION
     Dosage: 2 DF, 1X/DAY
     Route: 048
     Dates: start: 20190612, end: 2019
  3. ALTACE [Suspect]
     Active Substance: RAMIPRIL
     Dosage: 3 DF, QD
     Route: 048
     Dates: start: 2020
  4. VITAMIN D [ERGOCALCIFEROL] [Concomitant]
     Active Substance: ERGOCALCIFEROL
     Dosage: 1 DF, QD
     Route: 048

REACTIONS (4)
  - Condition aggravated [Unknown]
  - Gluten sensitivity [Not Recovered/Not Resolved]
  - Hypertension [Unknown]
  - Protein total abnormal [Not Recovered/Not Resolved]

NARRATIVE: CASE EVENT DATE: 2019
